FAERS Safety Report 17664154 (Version 2)
Quarter: 2020Q2

REPORT INFORMATION
  Report Type: Spontaneous
  Country: US (occurrence: US)
  Receive Date: 20200414
  Receipt Date: 20200417
  Transmission Date: 20200713
  Serious: No
  Sender: FDA-Public Use
  Company Number: US-ASTRAZENECA-2020SE49634

PATIENT
  Age: 38 Year
  Sex: Male

DRUGS (1)
  1. ZOMIG [Suspect]
     Active Substance: ZOLMITRIPTAN
     Dosage: USE 1 SPRAY (2.5MG) INTO NOSTRIL AT THE ONSET OF HEADACHE AS DIRECTED
     Route: 045

REACTIONS (3)
  - Headache [Unknown]
  - Migraine [Unknown]
  - Product quality issue [Unknown]
